FAERS Safety Report 4401303-7 (Version None)
Quarter: 2004Q3

REPORT INFORMATION
  Report Type: 
  Country: None (occurrence: None)
  Receive Date: 20040907
  Receipt Date: 20040223
  Transmission Date: 20050211
  Serious: Yes (Hospitalization, Other)
  Sender: FDA-Public Use
  Company Number: US-BRISTOL-MYERS SQUIBB COMPANY-12515086

PATIENT
  Age: 84 Year
  Sex: Female
  Weight: 61 kg

DRUGS (1)
  1. COUMADIN [Suspect]
     Indication: PROPHYLAXIS
     Dosage: INITIAL DOSE: 5 MG; PT}6. VITAMIN K, DOSE INCREASED TO 6 MG. PT }5, DOSE DECREASED TO 1 MG.
     Route: 048
     Dates: start: 20040110, end: 20040223

REACTIONS (3)
  - EPISTAXIS [None]
  - HAEMORRHAGE URINARY TRACT [None]
  - PROTHROMBIN TIME PROLONGED [None]
